FAERS Safety Report 5399363-2 (Version None)
Quarter: 2007Q3

REPORT INFORMATION
  Report Type: 
  Country: None (occurrence: None)
  Receive Date: 20070727
  Receipt Date: 20070717
  Transmission Date: 20080115
  Serious: Yes (Hospitalization)
  Sender: FDA-Public Use
  Company Number: GB-ROCHE-508213

PATIENT
  Age: 80 Year
  Sex: Female
  Weight: 97.2 kg

DRUGS (1)
  1. XENICAL [Suspect]
     Indication: OBESITY
     Route: 048
     Dates: start: 20061012, end: 20070421

REACTIONS (1)
  - CEREBROVASCULAR ACCIDENT [None]
